FAERS Safety Report 8240487-X (Version None)
Quarter: 2012Q1

REPORT INFORMATION
  Report Type: 
  Country: None (occurrence: None)
  Receive Date: 20120328
  Receipt Date: 20120323
  Transmission Date: 20120608
  Serious: Yes (Hospitalization)
  Sender: FDA-Public Use
  Company Number: FR-PFIZER INC-2012075406

PATIENT
  Age: 65 Year
  Sex: Male

DRUGS (3)
  1. EUPRESSYL [Concomitant]
     Indication: BLOOD PRESSURE INCREASED
  2. PERINDOPRIL ERBUMINE [Concomitant]
     Dosage: UNK
     Dates: start: 20111110
  3. SOLU-MEDROL [Suspect]
     Indication: ALOPECIA TOTALIS
     Dosage: 9 BOLUS IN TOTAL
     Route: 042
     Dates: start: 20111010, end: 20111207

REACTIONS (1)
  - ATRIAL FIBRILLATION [None]
